FAERS Safety Report 5281832-7 (Version None)
Quarter: 2007Q1

REPORT INFORMATION
  Report Type: 
  Country: None (occurrence: None)
  Receive Date: 20070330
  Receipt Date: 20070319
  Transmission Date: 20070707
  Serious: Yes (Hospitalization)
  Sender: FDA-Public Use
  Company Number: 2007AP01596

PATIENT
  Age: 25652 Day
  Sex: Female
  Weight: 42 kg

DRUGS (4)
  1. ARIMIDEX [Suspect]
     Indication: BREAST CANCER
     Route: 048
     Dates: start: 20060407, end: 20061012
  2. ARIMIDEX [Suspect]
     Route: 048
     Dates: start: 20070104, end: 20070127
  3. PACLITAXEL [Concomitant]
     Indication: BREAST CANCER
     Dosage: 8 COURSES
     Dates: start: 20060207, end: 20060331
  4. NOLVADEX [Concomitant]
     Indication: BREAST CANCER
     Route: 048
     Dates: start: 20061013, end: 20061117

REACTIONS (1)
  - INTERSTITIAL LUNG DISEASE [None]
